FAERS Safety Report 21616197 (Version 1)
Quarter: 2022Q4

REPORT INFORMATION
  Report Type: Spontaneous
  Country: US (occurrence: None)
  Receive Date: 20221117
  Receipt Date: 20221117
  Transmission Date: 20230112
  Serious: Yes (Death)
  Sender: FDA-Public Use
  Company Number: None

PATIENT
  Sex: Female

DRUGS (8)
  1. DALFAMPRIDINE [Suspect]
     Active Substance: DALFAMPRIDINE
     Indication: Multiple sclerosis
     Dosage: FREQUENCY : TWICE A DAY;?
     Route: 048
     Dates: start: 20181029, end: 20221113
  2. ASPIRIN CHW [Concomitant]
  3. LEVOTHYROXIN TAB [Concomitant]
  4. MODAFINIL TAB [Concomitant]
  5. POTASSIUM TAB [Concomitant]
  6. VITAMIN B12 TAB [Concomitant]
  7. VITAMIN D CAP [Concomitant]
  8. ZINC TAB [Concomitant]

REACTIONS (1)
  - Death [None]
